APPROVED DRUG PRODUCT: "CLOPRA-""YELLOW"""
Active Ingredient: METOCLOPRAMIDE HYDROCHLORIDE
Strength: EQ 10MG BASE
Dosage Form/Route: TABLET;ORAL
Application: A070632 | Product #001
Applicant: QUANTUM PHARMICS LTD
Approved: Oct 28, 1985 | RLD: No | RS: No | Type: DISCN